FAERS Safety Report 24072939 (Version 2)
Quarter: 2024Q3

REPORT INFORMATION
  Report Type: Spontaneous
  Country: UY (occurrence: UY)
  Receive Date: 20240710
  Receipt Date: 20240916
  Transmission Date: 20241017
  Serious: Yes (Other)
  Sender: ROCHE
  Company Number: UY-ROCHE-10000012423

PATIENT
  Age: 74 Year
  Sex: Male

DRUGS (7)
  1. POLATUZUMAB VEDOTIN [Suspect]
     Active Substance: POLATUZUMAB VEDOTIN
     Indication: B-cell lymphoma
     Dosage: FREQUENCY WAS NOT REPORTED
     Route: 042
     Dates: start: 20240613
  2. RITUXIMAB [Suspect]
     Active Substance: RITUXIMAB
     Indication: B-cell lymphoma
     Dosage: FREQUENCY WAS NOT REPORTED
     Route: 042
     Dates: start: 20240613
  3. BENDAMUSTINE [Concomitant]
     Active Substance: BENDAMUSTINE
     Indication: B-cell lymphoma
     Dosage: FREQUENCY: FOR 2 DAYS
     Dates: start: 20240613
  4. FLUCONAZOLE [Concomitant]
     Active Substance: FLUCONAZOLE
     Route: 048
  5. VALACYCLOVIR [Concomitant]
     Active Substance: VALACYCLOVIR HYDROCHLORIDE
     Route: 048
  6. ESOMEPRAZOLE [Concomitant]
     Active Substance: ESOMEPRAZOLE
     Dosage: DOSE: 1 TABLET
  7. FUROSEMIDE [Concomitant]
     Active Substance: FUROSEMIDE
     Dosage: DOSE: 1/2 TABLET
     Route: 048

REACTIONS (8)
  - Aplastic anaemia [Recovering/Resolving]
  - Respiratory tract infection [Recovering/Resolving]
  - Constipation [Unknown]
  - Proctalgia [Unknown]
  - Febrile neutropenia [Unknown]
  - Pyrexia [Unknown]
  - Diarrhoea [Unknown]
  - Decreased appetite [Unknown]

NARRATIVE: CASE EVENT DATE: 20240831
